FAERS Safety Report 6290044-X (Version None)
Quarter: 2009Q3

REPORT INFORMATION
  Report Type: 
  Country: None (occurrence: None)
  Receive Date: 20090730
  Receipt Date: 20081031
  Transmission Date: 20100115
  Serious: Yes (Other)
  Sender: FDA-Public Use
  Company Number: US-BRISTOL-MYERS SQUIBB COMPANY-14390645

PATIENT
  Age: 64 Year
  Sex: Female
  Weight: 57 kg

DRUGS (3)
  1. COUMADIN [Suspect]
     Indication: THROMBOSIS
     Dosage: 2.5MG ON 10/25/2008 AND 5MG ON 10/26/2008 AND 10/27/2008,STOP ON 10/29/08 10/30/08 THEN TOOK 2.5
     Dates: start: 20080912
  2. CALCIUM [Concomitant]
  3. VITAMIN D [Concomitant]

REACTIONS (6)
  - ABDOMINAL PAIN [None]
  - BLOOD URINE PRESENT [None]
  - DRY SKIN [None]
  - INTERNATIONAL NORMALISED RATIO INCREASED [None]
  - PYREXIA [None]
  - SKIN DISCOLOURATION [None]
